FAERS Safety Report 15073540 (Version 4)
Quarter: 2018Q3

REPORT INFORMATION
  Report Type: Spontaneous
  Country: US (occurrence: US)
  Receive Date: 20180627
  Receipt Date: 20180807
  Transmission Date: 20181010
  Serious: No
  Sender: FDA-Public Use
  Company Number: US-PFIZER INC-2018258235

PATIENT
  Age: 69 Year
  Sex: Female

DRUGS (1)
  1. SPIRONOLACTONE. [Suspect]
     Active Substance: SPIRONOLACTONE
     Indication: HYPERTRICHOSIS
     Dosage: 100 MG, DAILY (50 MG TWO PILLS ONCE A DAY BY MOUTH)
     Route: 048

REACTIONS (4)
  - Product use in unapproved indication [Unknown]
  - Rash [Unknown]
  - Lip swelling [Unknown]
  - Pruritus [Unknown]
